FAERS Safety Report 6602491-4 (Version None)
Quarter: 2010Q1

REPORT INFORMATION
  Report Type: 
  Country: None (occurrence: None)
  Receive Date: 20100225
  Receipt Date: 20100217
  Transmission Date: 20100710
  Serious: Yes (Hospitalization)
  Sender: FDA-Public Use
  Company Number: US-JNJFOC-20100103587

PATIENT
  Age: 73 Year
  Sex: Female
  Weight: 83.92 kg

DRUGS (2)
  1. TYLENOL [Suspect]
  2. TYLENOL [Suspect]
     Indication: ARTHRITIS

REACTIONS (3)
  - DIARRHOEA [None]
  - PRODUCT QUALITY ISSUE [None]
  - VOMITING [None]
